FAERS Safety Report 7987993-0 (Version None)
Quarter: 2011Q4

REPORT INFORMATION
  Report Type: 
  Country: None (occurrence: None)
  Receive Date: 20111216
  Receipt Date: 20110613
  Transmission Date: 20120403
  Serious: No
  Sender: FDA-Public Use
  Company Number: US-BRISTOL-MYERS SQUIBB COMPANY-15773468

PATIENT
  Age: 10 Year
  Sex: Male

DRUGS (4)
  1. GUANFACINE HYDROCHLORIDE [Suspect]
     Indication: AFFECTIVE DISORDER
  2. GUANFACINE HYDROCHLORIDE [Suspect]
     Indication: ATTENTION DEFICIT/HYPERACTIVITY DISORDER
  3. ABILIFY [Suspect]
     Indication: AFFECTIVE DISORDER
  4. ABILIFY [Suspect]
     Indication: ATTENTION DEFICIT/HYPERACTIVITY DISORDER

REACTIONS (3)
  - SOMNOLENCE [None]
  - SOMNAMBULISM [None]
  - ABNORMAL BEHAVIOUR [None]
